FAERS Safety Report 4430317-6 (Version None)
Quarter: 2004Q3

REPORT INFORMATION
  Report Type: 
  Country: None (occurrence: None)
  Receive Date: 20040805
  Receipt Date: 20040730
  Transmission Date: 20050211
  Serious: Yes (Hospitalization, Other)
  Sender: FDA-Public Use
  Company Number: 600694

PATIENT
  Age: 34 Year
  Sex: Female
  Weight: 66 kg

DRUGS (6)
  1. POLYGAM S/D [Suspect]
     Indication: COMPLICATION OF PREGNANCY
     Dosage: 66 GM; QD; INTRVNEOUS
     Route: 042
     Dates: start: 20030305, end: 20030306
  2. POLYGAM S/D [Suspect]
     Indication: IDIOPATHIC THROMBOCYTOPENIC PURPURA
     Dosage: 66 GM; QD; INTRVNEOUS
     Route: 042
     Dates: start: 20030305, end: 20030306
  3. POLYGAM S/D [Suspect]
  4. POLYGAM S/D [Suspect]
  5. PRENATAL VITAMINS [Concomitant]
  6. CORTICOSTEROIDS FOR SYSTEMIC USE [Concomitant]

REACTIONS (3)
  - ANTINUCLEAR ANTIBODY POSITIVE [None]
  - AUTOIMMUNE HEPATITIS [None]
  - DRUG EXPOSURE DURING PREGNANCY [None]
